FAERS Safety Report 14421080 (Version 3)
Quarter: 2018Q2

REPORT INFORMATION
  Report Type: Not Available
  Country: US (occurrence: US)
  Receive Date: 20180122
  Receipt Date: 20180604
  Transmission Date: 20180711
  Serious: No
  Sender: FDA-Public Use
  Company Number: US-NEUROCRINE BIOSCIENCES INC.-2018NBI00003

PATIENT
  Age: 64 Year
  Sex: Female

DRUGS (11)
  1. OXYBUTIN [Concomitant]
     Active Substance: OXYBUTYNIN
     Indication: MICTURITION URGENCY
     Route: 048
  2. ATIVAN [Concomitant]
     Active Substance: LORAZEPAM
     Indication: ANXIETY
     Dosage: 0.5 MG Q6H AS NEEDED
     Route: 048
  3. INGREZZA [Suspect]
     Active Substance: VALBENAZINE
     Indication: TARDIVE DYSKINESIA
     Route: 048
     Dates: start: 20171120, end: 20171127
  4. REMERON [Concomitant]
     Active Substance: MIRTAZAPINE
     Indication: DEPRESSION
     Route: 048
  5. SINGULAIR [Concomitant]
     Active Substance: MONTELUKAST SODIUM
     Indication: RHINITIS ALLERGIC
     Route: 048
  6. BACLOFEN. [Concomitant]
     Active Substance: BACLOFEN
     Indication: MUSCLE SPASMS
     Route: 048
  7. PAXIL [Concomitant]
     Active Substance: PAROXETINE HYDROCHLORIDE
     Indication: DEPRESSION
     Route: 048
  8. INDENOL [Concomitant]
     Active Substance: PROPRANOLOL HYDROCHLORIDE
     Route: 048
  9. REMERON [Concomitant]
     Active Substance: MIRTAZAPINE
     Indication: ANXIETY
  10. INGREZZA [Suspect]
     Active Substance: VALBENAZINE
     Route: 048
     Dates: start: 20171128, end: 201802
  11. PAXIL [Concomitant]
     Active Substance: PAROXETINE HYDROCHLORIDE
     Indication: ANXIETY

REACTIONS (19)
  - Musculoskeletal pain [Unknown]
  - Mobility decreased [Recovered/Resolved]
  - Fatigue [Recovering/Resolving]
  - Sluggishness [Unknown]
  - Asthenia [Unknown]
  - Immune system disorder [Recovered/Resolved]
  - Nausea [Unknown]
  - Urinary tract infection [Recovering/Resolving]
  - Headache [Unknown]
  - Gait disturbance [Recovered/Resolved]
  - Cystitis [Unknown]
  - Depression [Unknown]
  - Torticollis [Recovering/Resolving]
  - Kidney infection [Unknown]
  - Hypoaesthesia [Unknown]
  - Influenza [Recovering/Resolving]
  - Dystonia [Unknown]
  - Bradykinesia [Recovered/Resolved]
  - Tremor [Unknown]

NARRATIVE: CASE EVENT DATE: 20171120
